FAERS Safety Report 23609928 (Version 1)
Quarter: 2024Q1

REPORT INFORMATION
  Report Type: Spontaneous
  Country: SE (occurrence: SE)
  Receive Date: 20240308
  Receipt Date: 20240308
  Transmission Date: 20240409
  Serious: Yes (Disabling)
  Sender: FDA-Public Use
  Company Number: None

PATIENT
  Age: 63 Year
  Sex: Female
  Weight: 64 kg

DRUGS (4)
  1. MIRTAZAPINE [Suspect]
     Active Substance: MIRTAZAPINE
     Indication: Sleep disorder
     Dosage: MIRTAZAPINE ACTAVIS
     Route: 048
     Dates: start: 20231215, end: 20240129
  2. VITAMIN B FORTE [Concomitant]
     Indication: Product used for unknown indication
     Route: 048
     Dates: start: 20221201
  3. D-vitamin [Concomitant]
     Indication: Product used for unknown indication
     Route: 048
     Dates: start: 20231001
  4. ESCITALOPRAM [Concomitant]
     Active Substance: ESCITALOPRAM OXALATE
     Indication: Product used for unknown indication
     Dosage: ESCITALOPRAM TEVA
     Route: 048
     Dates: start: 20110115

REACTIONS (6)
  - Angina pectoris [Recovering/Resolving]
  - Mouth ulceration [Recovering/Resolving]
  - Dyspnoea [Recovering/Resolving]
  - Chromaturia [Recovering/Resolving]
  - Palpitations [Recovering/Resolving]
  - Hepatic enzyme abnormal [Unknown]

NARRATIVE: CASE EVENT DATE: 20230101
